FAERS Safety Report 7115362-4 (Version None)
Quarter: 2010Q4

REPORT INFORMATION
  Report Type: 
  Country: None (occurrence: None)
  Receive Date: 20101122
  Receipt Date: 20101115
  Transmission Date: 20110411
  Serious: Yes (Other)
  Sender: FDA-Public Use
  Company Number: FR-SANOFI-AVENTIS-2010SA069446

PATIENT
  Sex: Female

DRUGS (1)
  1. TAXOTERE [Suspect]
     Route: 065

REACTIONS (3)
  - ATRIAL FIBRILLATION [None]
  - PERICARDITIS [None]
  - PULMONARY HYPERTENSION [None]
